FAERS Safety Report 13628613 (Version 2)
Quarter: 2017Q2

REPORT INFORMATION
  Report Type: Spontaneous
  Country: GB (occurrence: GB)
  Receive Date: 20170608
  Receipt Date: 20170612
  Transmission Date: 20170830
  Serious: Yes (Hospitalization)
  Sender: FDA-Public Use
  Company Number: GB-PFIZER INC-2017250585

PATIENT
  Age: 70 Year
  Sex: Female

DRUGS (1)
  1. FRAGMIN [Suspect]
     Active Substance: DALTEPARIN SODIUM
     Dosage: 5000 IU, UNK
     Dates: start: 20170530

REACTIONS (6)
  - Nervous system disorder [Unknown]
  - Speech disorder [Unknown]
  - Hyperhidrosis [Unknown]
  - Malaise [Unknown]
  - Incoherent [Unknown]
  - Bowel movement irregularity [Unknown]

NARRATIVE: CASE EVENT DATE: 20170607
